FAERS Safety Report 9545530 (Version 2)
Quarter: 2013Q3

REPORT INFORMATION
  Report Type: Report from Study
  Country: US (occurrence: US)
  Receive Date: 20130923
  Receipt Date: 20130923
  Transmission Date: 20140515
  Serious: Yes (Hospitalization, Other)
  Sender: FDA-Public Use
  Company Number: US-SANOFI-AVENTIS-2013SA067036

PATIENT
  Age: 51 Year
  Sex: Female

DRUGS (10)
  1. DOCETAXEL [Suspect]
     Indication: HER-2 POSITIVE BREAST CANCER
     Dosage: DOSE: 75 MG/M2?VIAL
     Route: 042
     Dates: start: 20090625, end: 20090807
  2. TRASTUZUMAB [Suspect]
     Indication: HER-2 POSITIVE BREAST CANCER
     Dosage: DOSE: 8 MG/KG?VIAL
     Route: 042
     Dates: start: 20090625, end: 20090625
  3. TRASTUZUMAB [Suspect]
     Indication: HER-2 POSITIVE BREAST CANCER
     Dosage: DOSE: 6 MG/KG?VIALS
     Route: 042
     Dates: start: 20090625, end: 20090723
  4. TRASTUZUMAB [Suspect]
     Indication: HER-2 POSITIVE BREAST CANCER
     Dosage: DOSE: 6 MG/KG?VIALS
     Route: 042
     Dates: end: 20090807
  5. CARBOPLATIN [Suspect]
     Indication: HER-2 POSITIVE BREAST CANCER
     Dosage: DOSE: 6 AUC?VIALS
     Route: 042
     Dates: start: 20090625, end: 20090807
  6. AMLODIPINE [Concomitant]
     Dates: start: 20080226
  7. SIMVASTATIN [Concomitant]
     Dates: start: 20080311
  8. SLO-NIACIN [Concomitant]
     Dates: start: 20090622
  9. PONSTEL [Concomitant]
     Dates: start: 20080226
  10. TYLENOL [Concomitant]
     Dates: start: 20090722

REACTIONS (5)
  - Endocarditis [Recovered/Resolved]
  - Sepsis [Recovered/Resolved]
  - Arthritis infective [Recovered/Resolved]
  - Cardiac valve disease [Recovered/Resolved with Sequelae]
  - Neutropenia [Recovered/Resolved]
